FAERS Safety Report 21505876 (Version 1)
Quarter: 2022Q4

REPORT INFORMATION
  Report Type: Spontaneous
  Country: CH (occurrence: CH)
  Receive Date: 20221026
  Receipt Date: 20221026
  Transmission Date: 20230113
  Serious: No
  Sender: FDA-Public Use
  Company Number: CH-Blueprint Medicines Corporation-SP-CH-2022-003095

PATIENT

DRUGS (4)
  1. AVAPRITINIB [Suspect]
     Active Substance: AVAPRITINIB
     Indication: Systemic mastocytosis
     Route: 065
  2. AVAPRITINIB [Suspect]
     Active Substance: AVAPRITINIB
     Indication: Chronic myelomonocytic leukaemia
  3. AZACITIDINE [Concomitant]
     Active Substance: AZACITIDINE
     Indication: Systemic mastocytosis
     Route: 065
  4. AZACITIDINE [Concomitant]
     Active Substance: AZACITIDINE
     Indication: Chronic myelomonocytic leukaemia

REACTIONS (1)
  - Off label use [Unknown]
